FAERS Safety Report 17650461 (Version 2)
Quarter: 2020Q2

REPORT INFORMATION
  Report Type: Spontaneous
  Country: FR (occurrence: FR)
  Receive Date: 20200409
  Receipt Date: 20200608
  Transmission Date: 20200713
  Serious: Yes (Hospitalization)
  Sender: FDA-Public Use
  Company Number: FR-PFIZER INC-2020142966

PATIENT
  Age: 65 Year
  Sex: Female
  Weight: 59 kg

DRUGS (1)
  1. IBRANCE [Suspect]
     Active Substance: PALBOCICLIB
     Dosage: 21 DAYS DURING 28 DAYS; 21 DF EVERY 28 DAYS
     Route: 048
     Dates: start: 20200227

REACTIONS (2)
  - Skin reaction [Unknown]
  - Neutropenia [Unknown]

NARRATIVE: CASE EVENT DATE: 20200312
